FAERS Safety Report 7722421-1 (Version None)
Quarter: 2011Q3

REPORT INFORMATION
  Report Type: 
  Country: None (occurrence: None)
  Receive Date: 20110831
  Receipt Date: 20110816
  Transmission Date: 20111222
  Serious: Yes (Other)
  Sender: FDA-Public Use
  Company Number: SI-CUBIST-2011S1000497

PATIENT
  Age: 60 Year
  Sex: Male

DRUGS (3)
  1. VANCOMYCIN [Concomitant]
     Indication: DIABETIC FOOT
     Dosage: DOSE UNIT:U UNKNOWN
     Route: 042
  2. CUBICIN [Suspect]
     Indication: DIABETIC FOOT
     Route: 042
  3. CUBICIN [Suspect]
     Indication: STAPHYLOCOCCAL SEPSIS
     Route: 042

REACTIONS (5)
  - PCO2 DECREASED [None]
  - MENTAL STATUS CHANGES [None]
  - HEPATIC FUNCTION ABNORMAL [None]
  - LACTIC ACIDOSIS [None]
  - BODY TEMPERATURE INCREASED [None]
